FAERS Safety Report 9729304 (Version 1)
Quarter: 2013Q4

REPORT INFORMATION
  Report Type: Spontaneous
  Country: FR (occurrence: FR)
  Receive Date: 20131204
  Receipt Date: 20131204
  Transmission Date: 20140711
  Serious: Yes (Other)
  Sender: FDA-Public Use
  Company Number: FR-TEVA-448147ISR

PATIENT
  Sex: 0

DRUGS (1)
  1. MODAFINIL [Suspect]

REACTIONS (1)
  - Drug withdrawal syndrome [Unknown]
